FAERS Safety Report 4622480-9 (Version None)
Quarter: 2005Q1

REPORT INFORMATION
  Report Type: 
  Country: None (occurrence: None)
  Receive Date: 20050325
  Receipt Date: 20050325
  Transmission Date: 20050727
  Serious: No
  Sender: FDA-Public Use
  Company Number: None

PATIENT
  Sex: Female
  Weight: 54 kg

DRUGS (1)
  1. RIFABUTIN (PHARMACIA-UPJOHN) [Suspect]
     Indication: MYCOBACTERIUM AVIUM COMPLEX INFECTION
     Dosage: 300MG PO DAILY
     Route: 048
     Dates: start: 20041215, end: 20050307

REACTIONS (1)
  - RASH [None]
